FAERS Safety Report 13390474 (Version 1)
Quarter: 2017Q1

REPORT INFORMATION
  Report Type: Spontaneous
  Country: US (occurrence: US)
  Receive Date: 20170331
  Receipt Date: 20170331
  Transmission Date: 20170429
  Serious: Yes (Other)
  Sender: FDA-Public Use
  Company Number: US-BAYER-2017-056609

PATIENT
  Sex: Female
  Weight: 68.04 kg

DRUGS (7)
  1. OMEPRAZON [Concomitant]
     Active Substance: OMEPRAZOLE
  2. MONTELUKAST SODIUM. [Concomitant]
     Active Substance: MONTELUKAST SODIUM
     Indication: HYPERSENSITIVITY
     Dosage: 10 MG, UNK
  3. ALEVE [Suspect]
     Active Substance: NAPROXEN SODIUM
     Indication: INFLAMMATION
     Dosage: 500 MG, QD
     Route: 048
  4. ALEVE [Suspect]
     Active Substance: NAPROXEN SODIUM
     Indication: INFLAMMATION
     Dosage: 250 MG, QD
     Route: 048
  5. LYRICA [Suspect]
     Active Substance: PREGABALIN
     Indication: NEURALGIA
  6. LYRICA [Suspect]
     Active Substance: PREGABALIN
     Indication: NEUROMYOPATHY
     Dosage: 2 DF, BID
     Route: 048
     Dates: start: 2009
  7. NASONEX [Concomitant]
     Active Substance: MOMETASONE FUROATE
     Indication: HYPERSENSITIVITY
     Route: 045

REACTIONS (8)
  - Constipation [Unknown]
  - Abdominal distension [Not Recovered/Not Resolved]
  - Pain [Not Recovered/Not Resolved]
  - Product use issue [Unknown]
  - Glaucoma [Not Recovered/Not Resolved]
  - Dry eye [Unknown]
  - Weight increased [Not Recovered/Not Resolved]
  - Vision blurred [Unknown]

NARRATIVE: CASE EVENT DATE: 2009
